FAERS Safety Report 19793386 (Version 3)
Quarter: 2022Q1

REPORT INFORMATION
  Report Type: Report from Study
  Country: US (occurrence: US)
  Receive Date: 20210906
  Receipt Date: 20220308
  Transmission Date: 20220423
  Serious: Yes (Other)
  Sender: FDA-Public Use
  Company Number: US-PFIZER INC-202101132328

PATIENT

DRUGS (7)
  1. RITUXIMAB [Suspect]
     Active Substance: RITUXIMAB
     Indication: B-cell lymphoma
     Dosage: 375 MG/M2, CYCLIC (RANGE 367-428 MG/M^2) (MEAN CHEMOTHERAPY DOSES PER CYCLE)
     Route: 042
  2. DOXORUBICIN HYDROCHLORIDE [Suspect]
     Active Substance: DOXORUBICIN HYDROCHLORIDE
     Indication: B-cell lymphoma
     Dosage: 50 MG/M2, CYCLIC (RANGE 50-50 MG/M^2) (MEAN CHEMOTHERAPY DOSES PER CYCLE)
     Route: 042
  3. VINCRISTINE SULFATE [Suspect]
     Active Substance: VINCRISTINE SULFATE
     Indication: B-cell lymphoma
     Dosage: 1.4 MG/M2, CYCLIC (RANGE 1-2 MG/M^2) (MEAN CHEMOTHERAPY DOSES PER CYCLE)
     Route: 042
  4. PREDNISONE [Suspect]
     Active Substance: PREDNISONE
     Indication: B-cell lymphoma
     Dosage: 100 MG, CYCLIC (RANGE 58-340 MG) (MEAN CHEMOTHERAPY DOSES PER CYCLE)
     Route: 048
  5. CYCLOPHOSPHAMIDE [Suspect]
     Active Substance: CYCLOPHOSPHAMIDE
     Indication: B-cell lymphoma
     Dosage: 750 MG/M2, CYCLIC (RANGE 750-750 MG/M^2) (MEAN CHEMOTHERAPY DOSES PER CYCLE)
     Route: 042
  6. COPANLISIB [Suspect]
     Active Substance: COPANLISIB
     Indication: B-cell lymphoma
     Dosage: 45 MG, CYCLIC (FIRST LEVEL)
     Route: 042
  7. COPANLISIB [Suspect]
     Active Substance: COPANLISIB
     Dosage: 60 MG, CYCLIC (SECOND LEVEL)
     Route: 042

REACTIONS (1)
  - Pneumonitis [Unknown]
